FAERS Safety Report 19698557 (Version 1)
Quarter: 2021Q3

REPORT INFORMATION
  Report Type: Spontaneous
  Country: FR (occurrence: FR)
  Receive Date: 20210813
  Receipt Date: 20210813
  Transmission Date: 20211014
  Serious: Yes (Hospitalization)
  Sender: FDA-Public Use
  Company Number: FR-MYLANLABS-2021M1049590

PATIENT
  Age: 62 Year
  Sex: Female
  Weight: 65 kg

DRUGS (3)
  1. KETOPROFEN. [Suspect]
     Active Substance: KETOPROFEN
     Indication: ANTIINFLAMMATORY THERAPY
     Dosage: 200 MILLIGRAM, QD
     Route: 048
     Dates: start: 20210125, end: 20210129
  2. ESOMEPRAZOLE. [Concomitant]
     Active Substance: ESOMEPRAZOLE MAGNESIUM
     Indication: HYPERCHLORHYDRIA
     Dosage: 40 MILLIGRAM, QD
     Route: 048
     Dates: start: 20210125, end: 20210129
  3. CEFIXIME. [Concomitant]
     Active Substance: CEFIXIME
     Indication: CYSTITIS
     Dosage: 200 MILLIGRAM, QD
     Route: 048
     Dates: start: 202101, end: 202101

REACTIONS (1)
  - Colitis erosive [Recovering/Resolving]

NARRATIVE: CASE EVENT DATE: 20210131
